FAERS Safety Report 7243012-5 (Version None)
Quarter: 2011Q1

REPORT INFORMATION
  Report Type: 
  Country: None (occurrence: None)
  Receive Date: 20110125
  Receipt Date: 20100914
  Transmission Date: 20110831
  Serious: No
  Sender: FDA-Public Use
  Company Number: US-AMGEN-KDL438089

PATIENT
  Sex: Female

DRUGS (8)
  1. CALCIUM CARBONATE [Concomitant]
  2. DAPSONE [Concomitant]
  3. ROSUVASTATIN CALCIUM [Concomitant]
  4. LORSARTAN POTASSIUM HYDROCHLORIDE [Concomitant]
  5. CELECOXIB [Concomitant]
  6. NAPROXEN SODIUM [Concomitant]
  7. PROLIA [Suspect]
     Indication: OSTEOPOROSIS POSTMENOPAUSAL
     Dosage: 6 MG, UNK
     Dates: start: 20100907
  8. ACETAMINOPHEN [Concomitant]

REACTIONS (6)
  - BACK PAIN [None]
  - GAIT DISTURBANCE [None]
  - HYPOAESTHESIA [None]
  - PAIN IN EXTREMITY [None]
  - SLEEP DISORDER [None]
  - ARTHRALGIA [None]
